FAERS Safety Report 8800890 (Version 2)
Quarter: 2012Q4

REPORT INFORMATION
  Report Type: 
  Country: JP (occurrence: JP)
  Receive Date: 20120921
  Receipt Date: 20121112
  Transmission Date: 20130627
  Serious: Yes (Death, Hospitalization)
  Sender: FDA-Public Use
  Company Number: JP-AMGEN-JPNCT2012059783

PATIENT
  Age: 78 Year
  Sex: Female
  Weight: 34 kg

DRUGS (7)
  1. DARBEPOETIN ALFA [Suspect]
     Indication: NEPHROGENIC ANAEMIA
     Dosage: 60 mug, qd
     Route: 058
     Dates: start: 20111109, end: 20111109
  2. DARBEPOETIN ALFA [Suspect]
     Dosage: 60 mug, qd
     Route: 058
     Dates: start: 20111125, end: 20111125
  3. DARBEPOETIN ALFA [Suspect]
     Dosage: 120 mug, q4wk
     Route: 058
     Dates: start: 20111209
  4. NOVOLIN R [Concomitant]
     Dosage: UNK
     Route: 065
  5. NOVOLIN N [Concomitant]
     Dosage: UNK
     Route: 058
  6. ZYLORIC [Concomitant]
     Dosage: UNK
     Route: 048
  7. ERYTHROPOIETIN [Concomitant]
     Dosage: 1200 unit, UNK
     Dates: start: 20111012

REACTIONS (2)
  - Pneumonia [Fatal]
  - Fall [Unknown]
